FAERS Safety Report 9201892 (Version 2)
Quarter: 2013Q2

REPORT INFORMATION
  Report Type: Spontaneous
  Country: US (occurrence: US)
  Receive Date: 20130401
  Receipt Date: 20130515
  Transmission Date: 20140414
  Serious: Yes (Death)
  Sender: FDA-Public Use
  Company Number: US-TEVA-393352USA

PATIENT
  Age: 75 Year
  Sex: Female

DRUGS (1)
  1. ACTIQ [Suspect]
     Route: 048
     Dates: end: 20120805

REACTIONS (1)
  - Disease progression [Fatal]
